FAERS Safety Report 6124532-3 (Version None)
Quarter: 2009Q1

REPORT INFORMATION
  Report Type: 
  Country: None (occurrence: None)
  Receive Date: 20090319
  Receipt Date: 20090309
  Transmission Date: 20090719
  Serious: Yes (Hospitalization)
  Sender: FDA-Public Use
  Company Number: TR-ELI_LILLY_AND_COMPANY-TR200903002795

PATIENT
  Age: 75 Year
  Sex: Female

DRUGS (6)
  1. HUMULIN N [Suspect]
     Indication: DIABETES MELLITUS
     Dosage: 24 U, DAILY (1/D)
     Route: 058
     Dates: start: 20070306
  2. DILTIZEM [Concomitant]
  3. SINORETIK [Concomitant]
  4. PRAVACHOL [Concomitant]
  5. COUMADIN [Concomitant]
  6. DISPRIL                            /00002701/ [Concomitant]
     Route: 048
     Dates: start: 20001201

REACTIONS (1)
  - WOUND [None]
